FAERS Safety Report 4895358-3 (Version None)
Quarter: 2006Q1

REPORT INFORMATION
  Report Type: 
  Country: None (occurrence: None)
  Receive Date: 20060130
  Receipt Date: 20050601
  Transmission Date: 20060701
  Serious: Yes (Hospitalization, Other)
  Sender: FDA-Public Use
  Company Number: US-MERCK-0506USA00738

PATIENT
  Age: 79 Year
  Sex: Male
  Weight: 94 kg

DRUGS (11)
  1. VIOXX [Suspect]
     Indication: OSTEOARTHRITIS
     Route: 048
     Dates: end: 20030501
  2. VIOXX [Suspect]
     Route: 048
     Dates: end: 20020501
  3. VIOXX [Suspect]
     Route: 048
     Dates: end: 20030501
  4. VIOXX [Suspect]
     Route: 048
     Dates: end: 20020501
  5. LIPITOR [Concomitant]
     Route: 065
  6. VERAPAMIL [Concomitant]
     Route: 065
  7. FOLIC ACID [Concomitant]
     Route: 065
  8. NEXIUM [Concomitant]
     Route: 065
  9. CALCIUM (UNSPECIFIED) [Concomitant]
     Route: 065
  10. VITAMINS (UNSPECIFIED) [Concomitant]
     Route: 065
  11. FLOMAX (MORNIFLUMATE) [Concomitant]
     Route: 065

REACTIONS (21)
  - ANGINA PECTORIS [None]
  - ARTERIOSCLEROSIS CORONARY ARTERY [None]
  - ATRIAL FIBRILLATION [None]
  - AZOTAEMIA [None]
  - BLOOD PRESSURE DECREASED [None]
  - CARDIAC FAILURE CONGESTIVE [None]
  - CARDIOMYOPATHY [None]
  - CORONARY ARTERY DISEASE [None]
  - DEPRESSION [None]
  - DIZZINESS [None]
  - DYSPNOEA [None]
  - HEPATIC ENZYME INCREASED [None]
  - HYPERTENSION [None]
  - HYPOTENSION [None]
  - MUSCULOSKELETAL CHEST PAIN [None]
  - MYOCARDIAL INFARCTION [None]
  - NAUSEA [None]
  - OXYGEN SATURATION DECREASED [None]
  - RENAL FAILURE CHRONIC [None]
  - RHINITIS [None]
  - VOMITING [None]
